FAERS Safety Report 24412413 (Version 4)
Quarter: 2025Q3

REPORT INFORMATION
  Report Type: Spontaneous
  Country: US (occurrence: US)
  Receive Date: 20241008
  Receipt Date: 20250708
  Transmission Date: 20251020
  Serious: Yes (Disabling, Other)
  Sender: AMGEN
  Company Number: US-AMGEN-USASP2024195059

PATIENT
  Age: 61 Year
  Sex: Female

DRUGS (15)
  1. TEPEZZA [Suspect]
     Active Substance: TEPROTUMUMAB-TRBW
     Indication: Endocrine ophthalmopathy
     Dosage: UNK, Q3WK (FIRST INFUSION)
     Route: 042
     Dates: start: 2021
  2. TEPEZZA [Suspect]
     Active Substance: TEPROTUMUMAB-TRBW
     Indication: Graves^ disease
     Dosage: UNK, Q3WK (UNKNOWN INFUSION)
     Route: 042
     Dates: start: 20210330
  3. TEPEZZA [Suspect]
     Active Substance: TEPROTUMUMAB-TRBW
     Dosage: UNK, Q3WK (UNKNOWN INFUSION)
     Route: 042
     Dates: start: 20210503
  4. TEPEZZA [Suspect]
     Active Substance: TEPROTUMUMAB-TRBW
     Dosage: UNK, Q3WK (UNKNOWN INFUSION)
     Route: 042
     Dates: start: 20210531
  5. TEPEZZA [Suspect]
     Active Substance: TEPROTUMUMAB-TRBW
     Dosage: UNK, Q3WK (FOURTH INFUSION)
     Route: 042
     Dates: start: 2021
  6. TEPEZZA [Suspect]
     Active Substance: TEPROTUMUMAB-TRBW
     Dosage: UNK, Q3WK (UNKNOWN INFUSION)
     Route: 042
     Dates: start: 20210907
  7. TEPEZZA [Suspect]
     Active Substance: TEPROTUMUMAB-TRBW
     Dosage: UNK, Q3WK (EIGHTH INFUSION)
     Route: 042
     Dates: start: 20210927, end: 20210927
  8. METHIMAZOLE [Concomitant]
     Active Substance: METHIMAZOLE
     Indication: Graves^ disease
     Route: 065
  9. Artificial tears [Concomitant]
     Route: 047
  10. PROPRANOLOL [Concomitant]
     Active Substance: PROPRANOLOL HYDROCHLORIDE
     Route: 065
  11. FLUORESCEIN [Concomitant]
     Active Substance: FLUORESCEIN
     Route: 047
  12. TETRACAINE [Concomitant]
     Active Substance: TETRACAINE
     Route: 047
  13. PROPARACAINE [Concomitant]
     Active Substance: PROPARACAINE
     Route: 047
  14. E-MYCIN [Concomitant]
     Active Substance: ERYTHROMYCIN
  15. DOXYCYCLINE [Concomitant]
     Active Substance: DOXYCYCLINE
     Dosage: UNK UNK, QD
     Route: 048

REACTIONS (32)
  - Deafness neurosensory [Not Recovered/Not Resolved]
  - Endocrine ophthalmopathy [Not Recovered/Not Resolved]
  - Graves^ disease [Unknown]
  - Skin cancer [Unknown]
  - Contusion [Recovering/Resolving]
  - Emotional distress [Unknown]
  - Impaired quality of life [Unknown]
  - Anxiety [Unknown]
  - Pain [Unknown]
  - Discomfort [Unknown]
  - Blood thyroid stimulating hormone decreased [Unknown]
  - Vitamin D decreased [Unknown]
  - Thyroid stimulating immunoglobulin increased [Unknown]
  - Anti-thyroid antibody increased [Unknown]
  - Stress [Unknown]
  - Eczema eyelids [Recovering/Resolving]
  - Product use complaint [Unknown]
  - Eyelid margin crusting [Unknown]
  - Balance disorder [Not Recovered/Not Resolved]
  - Memory impairment [Not Recovered/Not Resolved]
  - Rhinorrhoea [Unknown]
  - Hyperhidrosis [Recovered/Resolved]
  - Papillary cystadenoma lymphomatosum [Not Recovered/Not Resolved]
  - Nasal septum deviation [Unknown]
  - Nasopharyngitis [Unknown]
  - Thyroid mass [Not Recovered/Not Resolved]
  - Cellulitis [Recovering/Resolving]
  - Nasal valve collapse [Unknown]
  - Asthenia [Unknown]
  - Alopecia [Recovering/Resolving]
  - Muscle spasms [Unknown]
  - Tinnitus [Not Recovered/Not Resolved]

NARRATIVE: CASE EVENT DATE: 20200701
